FAERS Safety Report 5049996-8 (Version None)
Quarter: 2006Q2

REPORT INFORMATION
  Report Type: 
  Country: None (occurrence: None)
  Receive Date: 20060601
  Receipt Date: 20060214
  Transmission Date: 20061013
  Serious: No
  Sender: FDA-Public Use
  Company Number: US200602002940

PATIENT
  Age: 40 Year
  Sex: Male

DRUGS (3)
  1. CYMBALTA [Suspect]
     Indication: DEPRESSION
     Dosage: 60 MG
     Dates: start: 20051201
  2. LEXAPRO /USA/(ESCITALOPRAM) [Concomitant]
  3. OPIODS [Concomitant]

REACTIONS (3)
  - DRUG INEFFECTIVE [None]
  - ERECTILE DYSFUNCTION [None]
  - SEXUAL DYSFUNCTION [None]
